FAERS Safety Report 10754503 (Version 1)
Quarter: 2015Q1

REPORT INFORMATION
  Report Type: Spontaneous
  Country: US (occurrence: None)
  Receive Date: 20150130
  Receipt Date: 20150130
  Transmission Date: 20150721
  Serious: Yes (Hospitalization)
  Sender: FDA-Public Use
  Company Number: None

PATIENT
  Age: 64 Year
  Sex: Male
  Weight: 135 kg

DRUGS (2)
  1. LINEZOLID. [Concomitant]
     Active Substance: LINEZOLID
  2. ZOSYN [Suspect]
     Active Substance: PIPERACILLIN SODIUM\TAZOBACTAM SODIUM
     Indication: SKIN INFECTION
     Dosage: 1 BAG, Q8H, INTRAVENOUS
     Route: 042
     Dates: start: 20150102, end: 20150121

REACTIONS (3)
  - Eosinophils urine present [None]
  - Hypersensitivity [None]
  - Thrombocytopenia [None]

NARRATIVE: CASE EVENT DATE: 20150120
